FAERS Safety Report 19827443 (Version 1)
Quarter: 2021Q3

REPORT INFORMATION
  Report Type: Spontaneous
  Country: CH (occurrence: CH)
  Receive Date: 20210914
  Receipt Date: 20210914
  Transmission Date: 20211014
  Serious: Yes (Other)
  Sender: FDA-Public Use
  Company Number: CH-GLAXOSMITHKLINE-CH2021192823

PATIENT
  Sex: Male

DRUGS (2)
  1. WELLBUTRIN [Suspect]
     Active Substance: BUPROPION HYDROCHLORIDE
     Dosage: 300 MG, QD
  2. WELLBUTRIN [Suspect]
     Active Substance: BUPROPION HYDROCHLORIDE
     Indication: PRODUCT USED FOR UNKNOWN INDICATION
     Dosage: 150 MG, QD

REACTIONS (8)
  - Pyrexia [Unknown]
  - Feeling hot [Unknown]
  - Anxiety [Unknown]
  - Dizziness [Unknown]
  - Serotonin syndrome [Unknown]
  - Therapeutic product effect incomplete [Unknown]
  - Mydriasis [Unknown]
  - Palpitations [Unknown]
